FAERS Safety Report 7770005-1 (Version None)
Quarter: 2011Q3

REPORT INFORMATION
  Report Type: 
  Country: None (occurrence: None)
  Receive Date: 20110922
  Receipt Date: 20100824
  Transmission Date: 20111222
  Serious: No
  Sender: FDA-Public Use
  Company Number: US-ASTRAZENECA-2008UW04301

PATIENT
  Age: 17354 Day
  Sex: Male
  Weight: 109.8 kg

DRUGS (7)
  1. ZYPREXA [Concomitant]
     Indication: BIPOLAR DISORDER
     Dates: start: 20030225, end: 20040213
  2. ABILIFY [Concomitant]
     Dates: start: 20060615
  3. SEROQUEL [Suspect]
     Dosage: 100 MG TO 500 MG
     Route: 048
     Dates: start: 20040702, end: 20060902
  4. GEODON [Concomitant]
     Dates: start: 20080121, end: 20080309
  5. SEROQUEL [Suspect]
     Indication: BIPOLAR DISORDER
     Dosage: 25-100 MG
     Route: 048
     Dates: start: 20040304
  6. SEROQUEL [Suspect]
     Route: 048
     Dates: start: 20040416, end: 20060917
  7. GLIPIZIDE [Concomitant]
     Dates: start: 20030513

REACTIONS (5)
  - WEIGHT INCREASED [None]
  - BLOOD CHOLESTEROL INCREASED [None]
  - HYPERLIPIDAEMIA [None]
  - TYPE 2 DIABETES MELLITUS [None]
  - DIABETIC COMPLICATION [None]
